FAERS Safety Report 9760324 (Version 1)
Quarter: 2013Q4

REPORT INFORMATION
  Report Type: Spontaneous
  Country: US (occurrence: US)
  Receive Date: 20131216
  Receipt Date: 20131216
  Transmission Date: 20140711
  Serious: No
  Sender: FDA-Public Use
  Company Number: US-GILEAD-2010-0029246

PATIENT
  Age: 62 Year
  Sex: Female
  Weight: 74.84 kg

DRUGS (13)
  1. LETAIRIS [Suspect]
     Indication: PULMONARY ARTERIAL HYPERTENSION
     Route: 048
     Dates: start: 20100310, end: 20100511
  2. REQUIP [Concomitant]
  3. DETROL LA [Concomitant]
  4. LIPITOR [Concomitant]
  5. LYRICA [Concomitant]
  6. SYNTHROID [Concomitant]
  7. TRAZODONE [Concomitant]
  8. FISH OIL [Concomitant]
  9. CITALOPRAM [Concomitant]
  10. PERCOCET [Concomitant]
  11. BIOTIN [Concomitant]
  12. PREMARIN [Concomitant]
  13. TRACLEER [Concomitant]

REACTIONS (1)
  - Sinusitis [Not Recovered/Not Resolved]
